FAERS Safety Report 5924038-8 (Version None)
Quarter: 2008Q4

REPORT INFORMATION
  Report Type: 
  Country: None (occurrence: None)
  Receive Date: 20081020
  Receipt Date: 20081014
  Transmission Date: 20090506
  Serious: Yes (Death, Hospitalization, Other)
  Sender: FDA-Public Use
  Company Number: PHHY2008JP23198

PATIENT
  Age: 44 Year
  Sex: Female

DRUGS (4)
  1. CYCLOSPORINE [Suspect]
     Indication: STEM CELL TRANSPLANT
     Dosage: UNK
     Dates: end: 20070101
  2. CYCLOSPORINE [Suspect]
     Dosage: UNK
     Dates: start: 20070101
  3. PREDNISOLONE [Concomitant]
     Indication: ACUTE GRAFT VERSUS HOST DISEASE
  4. CHOP [Concomitant]
     Dosage: UNK

REACTIONS (13)
  - ACUTE GRAFT VERSUS HOST DISEASE [None]
  - CORD BLOOD TRANSPLANT THERAPY [None]
  - DISEASE RECURRENCE [None]
  - EPSTEIN-BARR VIRUS ASSOCIATED LYMPHOPROLIFERATIVE DISORDER [None]
  - HISTIOCYTOSIS HAEMATOPHAGIC [None]
  - LIVER DISORDER [None]
  - LIVER INJURY [None]
  - LYMPHADENOPATHY [None]
  - MYELOFIBROSIS [None]
  - PANCYTOPENIA [None]
  - PERIPHERAL T-CELL LYMPHOMA UNSPECIFIED [None]
  - PYREXIA [None]
  - SEPTIC SHOCK [None]
